FAERS Safety Report 10962989 (Version 1)
Quarter: 2015Q1

REPORT INFORMATION
  Report Type: Spontaneous
  Country: US (occurrence: US)
  Receive Date: 20150205
  Receipt Date: 20150205
  Transmission Date: 20150721
  Serious: Yes (Death)
  Sender: FDA-Public Use
  Company Number: US-APOTEX-2015AP005999

PATIENT
  Age: 29 Year
  Sex: Female

DRUGS (3)
  1. NALOXONE [Suspect]
     Active Substance: NALOXONE
     Indication: PRODUCT USED FOR UNKNOWN INDICATION
     Route: 048
  2. MIRTAZAPINE. [Suspect]
     Active Substance: MIRTAZAPINE
     Indication: PRODUCT USED FOR UNKNOWN INDICATION
     Route: 048
  3. BUPRENORPHINE [Suspect]
     Active Substance: BUPRENORPHINE
     Indication: PRODUCT USED FOR UNKNOWN INDICATION
     Route: 048

REACTIONS (1)
  - Death [Fatal]
